FAERS Safety Report 7298775 (Version 2)
Quarter: 2012Q4

REPORT INFORMATION
  Report Type: Report from Study
  Country: HU (occurrence: HU)
  Receive Date: 20100226
  Receipt Date: 20120920
  Transmission Date: 20130627
  Serious: Yes (Hospitalization)
  Sender: FDA-Public Use
  Company Number: PHHO2010HU02832

PATIENT
  Age: 66 Year

DRUGS (5)
  1. CGS 20267 [Suspect]
     Indication: BREAST CANCER
     Dosage: 2.5 mg, QD
     Route: 048
     Dates: start: 20080428, end: 20090114
  2. BETALOC ZOK [Concomitant]
  3. COVEREX [Concomitant]
  4. ASTRIX [Concomitant]
  5. MINIPRESS [Concomitant]

REACTIONS (5)
  - Osteoporotic fracture [Recovered/Resolved]
  - Spinal fracture [Recovered/Resolved]
  - Back pain [Recovered/Resolved]
  - Concussion [Recovered/Resolved]
  - Fall [Recovered/Resolved]
